FAERS Safety Report 19943427 (Version 1)
Quarter: 2021Q4

REPORT INFORMATION
  Report Type: Spontaneous
  Country: US (occurrence: US)
  Receive Date: 20211011
  Receipt Date: 20211011
  Transmission Date: 20220303
  Serious: No
  Sender: FDA-Public Use
  Company Number: US-PFIZER INC-2021655878

PATIENT
  Age: 74 Year
  Sex: Female
  Weight: 83.9 kg

DRUGS (4)
  1. IBRANCE [Suspect]
     Active Substance: PALBOCICLIB
     Dosage: 125 MG
  2. PRAVASTATIN [Concomitant]
     Active Substance: PRAVASTATIN
     Indication: Blood cholesterol
     Dosage: 40 MG
  3. XGEVA [Concomitant]
     Active Substance: DENOSUMAB
     Dosage: 120 MG (EVERY FOUR WEEKS)
  4. FASLODEX [Concomitant]
     Active Substance: FULVESTRANT
     Dosage: 500 MG

REACTIONS (1)
  - White blood cell count decreased [Unknown]
